FAERS Safety Report 5919693-2 (Version None)
Quarter: 2008Q4

REPORT INFORMATION
  Report Type: 
  Country: None (occurrence: None)
  Receive Date: 20081010
  Receipt Date: 20081001
  Transmission Date: 20090506
  Serious: Yes (Other)
  Sender: FDA-Public Use
  Company Number: 2008AP000603

PATIENT
  Age: 43 Year
  Sex: Male

DRUGS (10)
  1. PAROXETINE HCL [Suspect]
     Dosage: SEE IMAGE
     Route: 048
     Dates: start: 19980401, end: 19980508
  2. PAROXETINE HCL [Suspect]
     Dosage: SEE IMAGE
     Route: 048
     Dates: start: 19970530
  3. PAROXETINE HCL [Suspect]
     Dosage: SEE IMAGE
     Route: 048
     Dates: start: 19970701
  4. PAROXETINE HCL [Suspect]
     Dosage: SEE IMAGE
     Route: 048
     Dates: start: 19980530
  5. PAROXETINE HCL [Suspect]
     Dosage: SEE IMAGE
     Route: 048
     Dates: start: 20060522
  6. DIAZEPAM [Concomitant]
  7. PROPRANOLOL [Concomitant]
  8. .. [Concomitant]
  9. CETIRIZINE HCL [Concomitant]
  10. DIAZEPAM [Concomitant]

REACTIONS (15)
  - DISTURBANCE IN ATTENTION [None]
  - DRUG DEPENDENCE [None]
  - DYSGEUSIA [None]
  - ERECTILE DYSFUNCTION [None]
  - HEARING IMPAIRED [None]
  - HYPERVENTILATION [None]
  - INCOHERENT [None]
  - INFLUENZA [None]
  - LETHARGY [None]
  - MEMORY IMPAIRMENT [None]
  - MOOD SWINGS [None]
  - SLEEP DISORDER [None]
  - SUICIDAL IDEATION [None]
  - SYNCOPE [None]
  - WITHDRAWAL SYNDROME [None]
